FAERS Safety Report 5598726-X (Version None)
Quarter: 2008Q1

REPORT INFORMATION
  Report Type: 
  Country: None (occurrence: None)
  Receive Date: 20080122
  Receipt Date: 20080110
  Transmission Date: 20080703
  Serious: Yes (Life-Threatening, Hospitalization, Other)
  Sender: FDA-Public Use
  Company Number: GB-BRISTOL-MYERS SQUIBB COMPANY-14026116

PATIENT
  Age: 59 Year
  Sex: Male

DRUGS (3)
  1. APROVEL [Suspect]
     Dosage: 150 MG FROM 21-NOV-2007 TO 14-DEC-2007.
     Route: 048
     Dates: start: 20071214, end: 20071201
  2. VANCOMYCIN [Suspect]
     Route: 041
     Dates: start: 20071120, end: 20071201
  3. METRONIDAZOLE [Concomitant]
     Route: 042
     Dates: end: 20071201

REACTIONS (1)
  - DRUG RASH WITH EOSINOPHILIA AND SYSTEMIC SYMPTOMS [None]
